FAERS Safety Report 19593377 (Version 1)
Quarter: 2021Q3

REPORT INFORMATION
  Report Type: Spontaneous
  Country: US (occurrence: US)
  Receive Date: 20210722
  Receipt Date: 20210722
  Transmission Date: 20211014
  Serious: Yes (Hospitalization)
  Sender: FDA-Public Use
  Company Number: None

PATIENT
  Age: 26 Year
  Sex: Male

DRUGS (12)
  1. BUSPIRONE [Concomitant]
     Active Substance: BUSPIRONE HYDROCHLORIDE
  2. TRAZODONE [Concomitant]
     Active Substance: TRAZODONE HYDROCHLORIDE
  3. HYDROXYCHLOR [Concomitant]
     Active Substance: HYDROXYCHLOROQUINE
  4. DULOXETINE. [Concomitant]
     Active Substance: DULOXETINE
  5. AZELASTINE. [Concomitant]
     Active Substance: AZELASTINE HYDROCHLORIDE
  6. HYDROCO/APAP [Concomitant]
     Active Substance: ACETAMINOPHEN\HYDROCODONE
  7. PREDNISONE. [Concomitant]
     Active Substance: PREDNISONE
  8. TRAMADOL. [Concomitant]
     Active Substance: TRAMADOL
  9. IBUPROFEN. [Concomitant]
     Active Substance: IBUPROFEN
  10. ORENCIA [Suspect]
     Active Substance: ABATACEPT
     Indication: SPONDYLOARTHROPATHY
     Dosage: OTHER FREQUENCY:EVERY WEEK;?
     Route: 058
  11. VENLAFAXINE [Concomitant]
     Active Substance: VENLAFAXINE HYDROCHLORIDE
  12. BUPROPION. [Concomitant]
     Active Substance: BUPROPION

REACTIONS (5)
  - Nausea [None]
  - Dizziness [None]
  - Condition aggravated [None]
  - Arthropathy [None]
  - Therapy interrupted [None]

NARRATIVE: CASE EVENT DATE: 20210720
